APPROVED DRUG PRODUCT: LOSARTAN POTASSIUM AND HYDROCHLOROTHIAZIDE
Active Ingredient: HYDROCHLOROTHIAZIDE; LOSARTAN POTASSIUM
Strength: 12.5MG;50MG
Dosage Form/Route: TABLET;ORAL
Application: A201845 | Product #001 | TE Code: AB
Applicant: JUBILANT CADISTA PHARMACEUTICALS INC
Approved: Sep 18, 2012 | RLD: No | RS: No | Type: RX